FAERS Safety Report 6052736-7 (Version None)
Quarter: 2009Q1

REPORT INFORMATION
  Report Type: 
  Country: None (occurrence: None)
  Receive Date: 20090121
  Receipt Date: 20090108
  Transmission Date: 20090719
  Serious: Yes (Hospitalization)
  Sender: FDA-Public Use
  Company Number: 2009-189292-NL

PATIENT
  Sex: Female

DRUGS (3)
  1. FSH [Suspect]
     Indication: OVARIAN HYPERSTIMULATION SYNDROME
     Dosage: 75-225 MIU/D, AND ADJUSTED TO A TAPERED, OR STEP-DOWN, PROTOCOL
  2. HCG [Suspect]
     Indication: OVARIAN HYPERSTIMULATION SYNDROME
  3. ORAL TETRACYCLINE [Concomitant]

REACTIONS (1)
  - INFECTION [None]
